FAERS Safety Report 8114157-2 (Version None)
Quarter: 2012Q1

REPORT INFORMATION
  Report Type: 
  Country: None (occurrence: None)
  Receive Date: 20120205
  Receipt Date: 20120127
  Transmission Date: 20120608
  Serious: Yes (Hospitalization)
  Sender: FDA-Public Use
  Company Number: PHHY2012CZ007222

PATIENT
  Sex: Female

DRUGS (2)
  1. JEANINE [Concomitant]
     Dosage: 1 DF, QD
  2. PENICILLIN V [Suspect]
     Dosage: 1500000 IU, TID
     Route: 048
     Dates: start: 20120102, end: 20120111

REACTIONS (2)
  - STEVENS-JOHNSON SYNDROME [None]
  - ANGIOEDEMA [None]
